FAERS Safety Report 8056612-X (Version None)
Quarter: 2012Q1

REPORT INFORMATION
  Report Type: 
  Country: None (occurrence: None)
  Receive Date: 20120119
  Receipt Date: 20120110
  Transmission Date: 20120608
  Serious: Yes (Other)
  Sender: FDA-Public Use
  Company Number: CHPA2012US000884

PATIENT
  Age: 60 Year
  Sex: Male

DRUGS (1)
  1. EXCEDRIN (MIGRAINE) [Suspect]
     Indication: MIGRAINE
     Dosage: 2 DF, UNK
     Route: 048
     Dates: end: 20120109

REACTIONS (6)
  - VOMITING [None]
  - FATIGUE [None]
  - GASTROENTERITIS VIRAL [None]
  - DEHYDRATION [None]
  - DIARRHOEA [None]
  - NAUSEA [None]
